FAERS Safety Report 7626536-8 (Version None)
Quarter: 2011Q3

REPORT INFORMATION
  Report Type: 
  Country: None (occurrence: None)
  Receive Date: 20110721
  Receipt Date: 20110630
  Transmission Date: 20111222
  Serious: Yes (Death, Hospitalization)
  Sender: FDA-Public Use
  Company Number: US-GLAXOSMITHKLINE-A0870920A

PATIENT
  Sex: Male
  Weight: 100 kg

DRUGS (6)
  1. TIAZAC [Concomitant]
  2. AVANDIA [Suspect]
     Indication: DIABETES MELLITUS
     Dosage: 8MG PER DAY
     Route: 048
     Dates: end: 20040401
  3. INSULIN [Concomitant]
  4. CELEXA [Concomitant]
  5. SEREVENT [Concomitant]
  6. FLOVENT [Concomitant]

REACTIONS (5)
  - CEREBRAL INFARCTION [None]
  - MYOCARDIAL INFARCTION [None]
  - CARDIAC FAILURE CONGESTIVE [None]
  - CEREBROVASCULAR ACCIDENT [None]
  - TRANSIENT ISCHAEMIC ATTACK [None]
